FAERS Safety Report 5910511-5 (Version None)
Quarter: 2008Q4

REPORT INFORMATION
  Report Type: 
  Country: None (occurrence: None)
  Receive Date: 20081007
  Receipt Date: 20080213
  Transmission Date: 20090506
  Serious: No
  Sender: FDA-Public Use
  Company Number: US-ASTRAZENECA-2008UW03030

PATIENT
  Age: 66 Year
  Sex: Female

DRUGS (1)
  1. ARIMIDEX [Suspect]
     Route: 048

REACTIONS (5)
  - BLOOD GLUCOSE INCREASED [None]
  - EYE IRRITATION [None]
  - HYPERTENSION [None]
  - NAUSEA [None]
  - NIGHT SWEATS [None]
